FAERS Safety Report 20212915 (Version 2)
Quarter: 2022Q1

REPORT INFORMATION
  Report Type: Report from Study
  Country: US (occurrence: US)
  Receive Date: 20211221
  Receipt Date: 20220105
  Transmission Date: 20220424
  Serious: No
  Sender: FDA-Public Use
  Company Number: US-SHIONOGI INC.-2021000237

PATIENT
  Age: 50 Year
  Sex: Male
  Weight: 87 kg

DRUGS (32)
  1. FETROJA [Suspect]
     Active Substance: CEFIDEROCOL SULFATE TOSYLATE
     Indication: Pneumonia
     Dosage: 1500 MG, 8 HOUR
     Route: 042
     Dates: start: 20210313, end: 20210319
  2. FETROJA [Suspect]
     Active Substance: CEFIDEROCOL SULFATE TOSYLATE
     Indication: Empyema
     Dosage: 1 G, 8 HOUR
     Route: 042
     Dates: start: 20210320, end: 20210329
  3. FETROJA [Suspect]
     Active Substance: CEFIDEROCOL SULFATE TOSYLATE
     Dosage: 2 G, 8 HOUR
     Route: 042
     Dates: start: 20210329, end: 20210401
  4. FETROJA [Suspect]
     Active Substance: CEFIDEROCOL SULFATE TOSYLATE
     Dosage: 2 G, 8 HOUR
     Route: 042
     Dates: start: 20210407, end: 20210413
  5. CEFEPIME [Concomitant]
     Active Substance: CEFEPIME HYDROCHLORIDE
     Indication: Pneumonia
     Dosage: UNKNOWN
     Route: 065
     Dates: start: 20210218, end: 20210218
  6. CEFEPIME [Concomitant]
     Active Substance: CEFEPIME HYDROCHLORIDE
     Indication: Empyema
  7. MEROPENEM [Concomitant]
     Active Substance: MEROPENEM
     Indication: Pneumonia
     Dosage: UNK, QD
     Route: 065
     Dates: start: 20210218
  8. MEROPENEM [Concomitant]
     Active Substance: MEROPENEM
     Indication: Empyema
     Dosage: UNK
     Route: 065
     Dates: start: 20210310, end: 20210313
  9. VANCOMYCIN [Concomitant]
     Active Substance: VANCOMYCIN
     Indication: Empyema
     Dosage: UNK
     Route: 065
     Dates: start: 20210218, end: 20210219
  10. VANCOMYCIN [Concomitant]
     Active Substance: VANCOMYCIN
     Indication: Pneumonia
  11. ZOSYN [Concomitant]
     Active Substance: PIPERACILLIN SODIUM\TAZOBACTAM SODIUM
     Indication: Empyema
     Dosage: UNK
     Route: 065
     Dates: start: 20210219, end: 20210225
  12. ZOSYN [Concomitant]
     Active Substance: PIPERACILLIN SODIUM\TAZOBACTAM SODIUM
     Indication: Pneumonia
  13. LINEZOLID [Concomitant]
     Active Substance: LINEZOLID
     Indication: Empyema
     Dosage: UNK
     Route: 048
     Dates: start: 20210219, end: 20210304
  14. LINEZOLID [Concomitant]
     Active Substance: LINEZOLID
     Indication: Pneumonia
     Dosage: UNK
     Route: 065
     Dates: start: 20210310, end: 20210316
  15. METRONIDAZOLE [Concomitant]
     Active Substance: METRONIDAZOLE
     Indication: Pneumonia
     Dosage: UNK, QD
     Route: 065
     Dates: start: 20210218
  16. METRONIDAZOLE [Concomitant]
     Active Substance: METRONIDAZOLE
     Indication: Empyema
     Dosage: UNK
     Route: 065
     Dates: start: 20210310
  17. METRONIDAZOLE [Concomitant]
     Active Substance: METRONIDAZOLE
     Dosage: UNK
     Route: 065
     Dates: start: 20210313, end: 20210322
  18. METRONIDAZOLE [Concomitant]
     Active Substance: METRONIDAZOLE
     Dosage: UNK
     Route: 065
     Dates: start: 20210402, end: 20210407
  19. TIGECYCLINE [Concomitant]
     Active Substance: TIGECYCLINE
     Indication: Pneumonia
     Dosage: UNK
     Route: 065
     Dates: start: 20210303, end: 20210310
  20. TIGECYCLINE [Concomitant]
     Active Substance: TIGECYCLINE
     Indication: Empyema
     Dosage: UNK
     Route: 065
     Dates: start: 20210407, end: 20210413
  21. COLISTIN [Concomitant]
     Active Substance: COLISTIN
     Indication: Empyema
     Dosage: UNK
     Route: 065
     Dates: start: 20210310, end: 20210313
  22. COLISTIN [Concomitant]
     Active Substance: COLISTIN
     Indication: Pneumonia
  23. MICAFUNGIN [Concomitant]
     Active Substance: MICAFUNGIN
     Indication: Pneumonia
     Dosage: UNK
     Route: 065
     Dates: start: 20210315, end: 20210318
  24. MICAFUNGIN [Concomitant]
     Active Substance: MICAFUNGIN
     Indication: Empyema
  25. AMOXICILLIN [Concomitant]
     Active Substance: AMOXICILLIN
     Indication: Pneumonia
     Dosage: UNK
     Route: 065
     Dates: start: 20210317, end: 20210322
  26. AMOXICILLIN [Concomitant]
     Active Substance: AMOXICILLIN
     Indication: Empyema
  27. FLUCONAZOLE [Concomitant]
     Active Substance: FLUCONAZOLE
     Indication: Empyema
     Dosage: UNK
     Route: 065
     Dates: start: 20210319, end: 20210329
  28. FLUCONAZOLE [Concomitant]
     Active Substance: FLUCONAZOLE
     Indication: Pneumonia
  29. AMOXICILLIN\CLAVULANIC ACID [Concomitant]
     Active Substance: AMOXICILLIN\CLAVULANIC ACID
     Indication: Pneumonia
     Dosage: UNK
     Route: 065
     Dates: start: 20210323, end: 20210402
  30. AMOXICILLIN\CLAVULANIC ACID [Concomitant]
     Active Substance: AMOXICILLIN\CLAVULANIC ACID
     Indication: Empyema
  31. ERAVACYCLINE [Concomitant]
     Active Substance: ERAVACYCLINE
     Indication: Pneumonia
     Dosage: 100 UNK, 1 PER 12 HOUR
     Route: 042
  32. ERAVACYCLINE [Concomitant]
     Active Substance: ERAVACYCLINE
     Indication: Empyema

REACTIONS (1)
  - Drug resistance [Unknown]

NARRATIVE: CASE EVENT DATE: 20210324
